FAERS Safety Report 22342163 (Version 1)
Quarter: 2023Q2

REPORT INFORMATION
  Report Type: Spontaneous
  Country: US (occurrence: US)
  Receive Date: 20230519
  Receipt Date: 20230519
  Transmission Date: 20230721
  Serious: Yes (Hospitalization, Other)
  Sender: FDA-Public Use
  Company Number: US-ALEMBIC PHARMACUETICALS LIMITED-2023SCAL000209

PATIENT

DRUGS (1)
  1. LITHIUM CARBONATE [Suspect]
     Active Substance: LITHIUM CARBONATE
     Indication: Bipolar disorder
     Dosage: UNK
     Route: 065

REACTIONS (6)
  - Anion gap decreased [Recovering/Resolving]
  - Mental status changes [Recovering/Resolving]
  - Altered state of consciousness [None]
  - Lethargy [Recovering/Resolving]
  - Overdose [Recovering/Resolving]
  - Blood creatinine increased [Recovering/Resolving]
